FAERS Safety Report 5845930-9 (Version None)
Quarter: 2008Q3

REPORT INFORMATION
  Report Type: 
  Country: None (occurrence: None)
  Receive Date: 20080731
  Receipt Date: 20080604
  Transmission Date: 20090109
  Serious: No
  Sender: FDA-Public Use
  Company Number: US200806001278

PATIENT
  Age: 38 Year
  Sex: Female

DRUGS (7)
  1. BYETTA [Suspect]
     Indication: TYPE 2 DIABETES MELLITUS
     Dosage: 5 UG, SUBCUTANEOUS ; 10 UG, SUBCUTANEOUS ; 5 UG, SUBCUTANEOUS
     Route: 058
     Dates: start: 20071001, end: 20080101
  2. BYETTA [Suspect]
     Indication: TYPE 2 DIABETES MELLITUS
     Dosage: 5 UG, SUBCUTANEOUS ; 10 UG, SUBCUTANEOUS ; 5 UG, SUBCUTANEOUS
     Route: 058
     Dates: start: 20080101, end: 20080201
  3. BYETTA [Suspect]
     Indication: TYPE 2 DIABETES MELLITUS
     Dosage: 5 UG, SUBCUTANEOUS ; 10 UG, SUBCUTANEOUS ; 5 UG, SUBCUTANEOUS
     Route: 058
     Dates: start: 20080201, end: 20080601
  4. GLIMEPIRIDE [Concomitant]
  5. DIOVAN (HYDROCHLOROTHIAZIDE, VALSARTAN) [Concomitant]
  6. ZOCOR [Concomitant]
  7. SYMLIN [Concomitant]

REACTIONS (8)
  - BLOOD GLUCOSE DECREASED [None]
  - DIARRHOEA [None]
  - HYPERHIDROSIS [None]
  - INJECTION SITE RASH [None]
  - NAUSEA [None]
  - PALLOR [None]
  - TINNITUS [None]
  - VOMITING [None]
